FAERS Safety Report 8037630-4 (Version None)
Quarter: 2012Q1

REPORT INFORMATION
  Report Type: 
  Country: None (occurrence: None)
  Receive Date: 20120111
  Receipt Date: 20120106
  Transmission Date: 20120608
  Serious: No
  Sender: FDA-Public Use
  Company Number: US-BAYER-2012-002806

PATIENT
  Age: 48 Year
  Sex: Male

DRUGS (2)
  1. ULTRAVIST 150 [Suspect]
     Indication: COMPUTERISED TOMOGRAM ABDOMEN
     Dosage: 186 ML, ONCE
     Route: 042
     Dates: start: 20120106, end: 20120106
  2. ULTRAVIST 150 [Suspect]
     Indication: HAEMATURIA

REACTIONS (2)
  - PRURITUS [None]
  - URTICARIA [None]
